FAERS Safety Report 22173977 (Version 1)
Quarter: 2023Q2

REPORT INFORMATION
  Report Type: Report from Study
  Country: AR (occurrence: AR)
  Receive Date: 20230404
  Receipt Date: 20230404
  Transmission Date: 20230721
  Serious: Yes (Other)
  Sender: FDA-Public Use
  Company Number: AR-ABBVIE-4714841

PATIENT
  Age: 71 Year
  Sex: Female

DRUGS (1)
  1. HUMIRA [Suspect]
     Active Substance: ADALIMUMAB
     Indication: Rheumatoid arthritis
     Dosage: STRENGTH: 40MG
     Route: 058
     Dates: start: 20210722

REACTIONS (1)
  - Tendon rupture [Recovered/Resolved]

NARRATIVE: CASE EVENT DATE: 20230315
